FAERS Safety Report 10219069 (Version 2)
Quarter: 2014Q2

REPORT INFORMATION
  Report Type: Spontaneous
  Country: US (occurrence: US)
  Receive Date: 20140605
  Receipt Date: 20140616
  Transmission Date: 20141212
  Serious: Yes (Hospitalization, Other)
  Sender: FDA-Public Use
  Company Number: US-PFIZER INC-2014150904

PATIENT
  Age: 60 Year
  Sex: Female

DRUGS (14)
  1. AZITHROMYCIN [Suspect]
     Indication: INFECTION
     Dosage: UNK
     Route: 065
  2. CLARITHROMYCIN [Suspect]
     Indication: INFECTION
     Dosage: 1000 MG, DAILY
     Route: 065
  3. FLUCONAZOLE [Suspect]
     Indication: BALAMUTHIA INFECTION
     Dosage: 400 MG, DAILY
     Route: 065
  4. TACROLIMUS [Suspect]
     Indication: IMMUNOSUPPRESSION
     Dosage: UNK
     Route: 065
  5. TACROLIMUS [Suspect]
     Indication: IMMUNOSUPPRESSANT DRUG THERAPY
  6. MILTEFOSINE [Suspect]
     Indication: INFECTION
     Dosage: UNK
     Route: 065
  7. ALBENDAZOLE [Suspect]
     Indication: BALAMUTHIA INFECTION
     Dosage: UNK
     Route: 065
  8. ALBENDAZOLE [Suspect]
     Indication: IMMUNOSUPPRESSANT DRUG THERAPY
  9. ALEMTUZUMAB [Concomitant]
     Indication: IMMUNE TOLERANCE INDUCTION
     Dosage: UNK
     Route: 065
  10. ALEMTUZUMAB [Concomitant]
     Indication: IMMUNOSUPPRESSANT DRUG THERAPY
  11. METHYLPREDNISOLONE [Concomitant]
     Indication: IMMUNE TOLERANCE INDUCTION
     Dosage: UNK
     Route: 065
  12. METHYLPREDNISOLONE [Concomitant]
     Indication: IMMUNOSUPPRESSANT DRUG THERAPY
  13. MYCOPHENOLATE MOFETIL [Concomitant]
     Indication: IMMUNOSUPPRESSION
     Dosage: UNK
     Route: 065
  14. MYCOPHENOLATE MOFETIL [Concomitant]
     Indication: IMMUNOSUPPRESSANT DRUG THERAPY

REACTIONS (8)
  - Renal failure acute [Recovered/Resolved]
  - Abasia [Recovered/Resolved]
  - Hallucination [Recovered/Resolved]
  - Toxicity to various agents [Recovered/Resolved]
  - Balance disorder [Recovered/Resolved]
  - Nausea [Recovered/Resolved]
  - Vomiting [Recovered/Resolved]
  - Dehydration [Recovered/Resolved]
